FAERS Safety Report 26209604 (Version 1)
Quarter: 2025Q4

REPORT INFORMATION
  Report Type: Spontaneous
  Country: EU (occurrence: EU)
  Receive Date: 20251229
  Receipt Date: 20251229
  Transmission Date: 20260117
  Serious: Yes (Disabling, Other)
  Sender: BAYER HEALTHCARE PHARMACEUTICALS INC.
  Company Number: None

PATIENT
  Age: 55 Year
  Sex: Male
  Weight: 86 kg

DRUGS (1)
  1. INTERFERON BETA-1B [Suspect]
     Active Substance: INTERFERON BETA-1B
     Indication: Multiple sclerosis
     Dosage: 250 ?G, QOD
     Route: 058
     Dates: start: 2005, end: 2025

REACTIONS (5)
  - Application site erythema [Recovered/Resolved]
  - Pyrexia [Recovered/Resolved]
  - Application site oedema [Recovered/Resolved]
  - Application site pain [Recovered/Resolved]
  - Lipoatrophy [Recovered/Resolved]

NARRATIVE: CASE EVENT DATE: 20250801
